FAERS Safety Report 10807781 (Version 1)
Quarter: 2015Q1

REPORT INFORMATION
  Report Type: Report from Study
  Country: US (occurrence: US)
  Receive Date: 20150217
  Receipt Date: 20150217
  Transmission Date: 20150721
  Serious: Yes (Other)
  Sender: FDA-Public Use
  Company Number: US-ABBVIE-14K-163-1243611-00

PATIENT
  Age: 52 Year
  Sex: Female

DRUGS (12)
  1. ATIVAN [Concomitant]
     Active Substance: LORAZEPAM
     Indication: PRODUCT USED FOR UNKNOWN INDICATION
     Dates: end: 20140724
  2. PREDNISONE. [Concomitant]
     Active Substance: PREDNISONE
     Dates: start: 20140724
  3. HUMIRA [Suspect]
     Active Substance: ADALIMUMAB
     Dates: end: 20140815
  4. PREDNISONE. [Concomitant]
     Active Substance: PREDNISONE
     Indication: CROHN^S DISEASE
  5. OXYCODONE [Concomitant]
     Active Substance: OXYCODONE
     Indication: PAIN
  6. ZOFRAN [Concomitant]
     Active Substance: ONDANSETRON HYDROCHLORIDE
     Indication: NAUSEA
     Dosage: 4 TIMES PER DAY
  7. CELEXA [Concomitant]
     Active Substance: CITALOPRAM HYDROBROMIDE
     Indication: DEPRESSION
  8. CELEXA [Concomitant]
     Active Substance: CITALOPRAM HYDROBROMIDE
     Dates: start: 20140724
  9. HUMIRA [Suspect]
     Active Substance: ADALIMUMAB
     Indication: CROHN^S DISEASE
     Dates: start: 20140516, end: 20140516
  10. OXYCODONE [Concomitant]
     Active Substance: OXYCODONE
     Dates: start: 20140724
  11. HYCOMINE [Concomitant]
     Active Substance: HYDROCODONE BITARTRATE\PHENYLPROPANOLAMINE HYDROCHLORIDE
     Indication: DIVERTICULITIS
  12. HUMIRA [Suspect]
     Active Substance: ADALIMUMAB
     Dates: start: 20140530, end: 20140530

REACTIONS (8)
  - Injection site bruising [Recovering/Resolving]
  - Drug ineffective [Not Recovered/Not Resolved]
  - Rectal spasm [Not Recovered/Not Resolved]
  - Nausea [Not Recovered/Not Resolved]
  - Colon cancer [Unknown]
  - Haemorrhoids [Not Recovered/Not Resolved]
  - Back pain [Not Recovered/Not Resolved]
  - White blood cell count increased [Unknown]

NARRATIVE: CASE EVENT DATE: 2014
